FAERS Safety Report 12709599 (Version 1)
Quarter: 2016Q3

REPORT INFORMATION
  Report Type: Spontaneous
  Country: US (occurrence: None)
  Receive Date: 20160901
  Receipt Date: 20160901
  Transmission Date: 20161109
  Serious: Yes (Hospitalization, Other)
  Sender: FDA-Public Use
  Company Number: None

PATIENT
  Age: 56 Year
  Sex: Female

DRUGS (5)
  1. SIMVASTATIN. [Concomitant]
     Active Substance: SIMVASTATIN
  2. LISINOPRIL. [Concomitant]
     Active Substance: LISINOPRIL
  3. AMPYRA [Suspect]
     Active Substance: DALFAMPRIDINE
     Indication: MULTIPLE SCLEROSIS
     Route: 048
     Dates: start: 201011
  4. GLATOPA [Concomitant]
     Active Substance: GLATIRAMER ACETATE
  5. BACLOFEN SINEMET CR [Concomitant]

REACTIONS (3)
  - Laboratory test abnormal [None]
  - Postictal paralysis [None]
  - Seizure [None]

NARRATIVE: CASE EVENT DATE: 20160824
